FAERS Safety Report 9301814 (Version 1)
Quarter: 2013Q2

REPORT INFORMATION
  Report Type: Spontaneous
  Country: US (occurrence: US)
  Receive Date: 20130521
  Receipt Date: 20130521
  Transmission Date: 20140414
  Serious: No
  Sender: FDA-Public Use
  Company Number: US-TEVA-349248USA

PATIENT
  Sex: Male
  Weight: 102.15 kg

DRUGS (3)
  1. FENTORA [Suspect]
     Indication: RHEUMATOID ARTHRITIS
     Dosage: 4 LOZENGES/DAY
     Route: 002
  2. FENTANYL [Concomitant]
     Indication: RHEUMATOID ARTHRITIS
     Dosage: 100 MCG PLUS 25 MCG Q 48 HRS
     Route: 061
  3. ASA [Concomitant]
     Indication: ANTICOAGULANT THERAPY
     Dosage: 650 MILLIGRAM DAILY;
     Route: 048

REACTIONS (2)
  - Pain [Unknown]
  - Off label use [Unknown]
